FAERS Safety Report 4773944-9 (Version None)
Quarter: 2005Q3

REPORT INFORMATION
  Report Type: 
  Country: None (occurrence: None)
  Receive Date: 20050919
  Receipt Date: 20050901
  Transmission Date: 20060218
  Serious: Yes (Hospitalization)
  Sender: FDA-Public Use
  Company Number: ENTC2005-0266

PATIENT
  Age: 83 Year
  Sex: Male

DRUGS (1)
  1. STALEVO (UNKNOWN)  (LEVODOPA, CARBIDOPA, ENTACAPONE) [Suspect]
     Indication: PARKINSON'S DISEASE
     Dosage: 100/25/200 X 5, ORAL
     Route: 048
     Dates: start: 20050322, end: 20050701

REACTIONS (4)
  - ABSCESS [None]
  - CONCOMITANT DISEASE PROGRESSION [None]
  - GASTRIC DISORDER [None]
  - WEIGHT DECREASED [None]
